FAERS Safety Report 9195428 (Version 1)
Quarter: 2013Q1

REPORT INFORMATION
  Report Type: Spontaneous
  Country: US (occurrence: US)
  Receive Date: 20130328
  Receipt Date: 20130328
  Transmission Date: 20140127
  Serious: No
  Sender: FDA-Public Use
  Company Number: US-ALLERGAN-1303095US

PATIENT
  Age: 69 Year
  Sex: Female

DRUGS (2)
  1. LUMIGAN? 0.01% [Suspect]
     Indication: GLAUCOMA
     Dosage: 1 GTT, QHS
     Route: 047
     Dates: start: 20130226
  2. ALPHAGAN? [Concomitant]
     Indication: GLAUCOMA
     Dosage: 1 GTT, TID
     Route: 047

REACTIONS (2)
  - Sinusitis [Unknown]
  - Iris hyperpigmentation [Unknown]
